FAERS Safety Report 4358613-1 (Version None)
Quarter: 2004Q2

REPORT INFORMATION
  Report Type: 
  Country: None (occurrence: None)
  Receive Date: 20040514
  Receipt Date: 20040430
  Transmission Date: 20050107
  Serious: Yes (Other)
  Sender: FDA-Public Use
  Company Number: HQWYE670003MAY04

PATIENT
  Age: 52 Year
  Sex: Male

DRUGS (6)
  1. CORDARONE [Suspect]
     Indication: ATRIAL FIBRILLATION
     Dosage: 100 MG 1X PER 1 DAY
     Route: 048
  2. DIGOXIN [Concomitant]
  3. RAMIPRIL [Concomitant]
  4. ATENOLOL [Concomitant]
  5. AMLODIPINE [Concomitant]
  6. MIRTAZAPINE [Concomitant]

REACTIONS (2)
  - ATRIAL FIBRILLATION [None]
  - HYPERTHYROIDISM [None]
